FAERS Safety Report 13385567 (Version 1)
Quarter: 2017Q1

REPORT INFORMATION
  Report Type: Spontaneous
  Country: US (occurrence: US)
  Receive Date: 20170330
  Receipt Date: 20170330
  Transmission Date: 20170429
  Serious: Yes (Hospitalization)
  Sender: FDA-Public Use
  Company Number: None

PATIENT
  Age: 5 Year
  Sex: Female

DRUGS (1)
  1. SILADRYL ALLERGY MEDICINE [Suspect]
     Active Substance: DIPHENHYDRAMINE HYDROCHLORIDE
     Indication: HYPERSENSITIVITY
     Route: 048
     Dates: start: 20170303, end: 20170328

REACTIONS (7)
  - Pruritus [None]
  - Headache [None]
  - Diarrhoea [None]
  - Viral infection [None]
  - Abdominal pain upper [None]
  - Haemorrhage [None]
  - Scratch [None]

NARRATIVE: CASE EVENT DATE: 20170329
